FAERS Safety Report 4346809-4 (Version None)
Quarter: 2004Q2

REPORT INFORMATION
  Report Type: 
  Country: None (occurrence: None)
  Receive Date: 20040426
  Receipt Date: 20040415
  Transmission Date: 20050107
  Serious: Yes (Hospitalization)
  Sender: FDA-Public Use
  Company Number: US-MERCK-0404USA01538

PATIENT
  Age: 88 Year
  Sex: Female
  Weight: 60 kg

DRUGS (16)
  1. SYNTHROID [Concomitant]
     Route: 065
  2. NAMENDA [Suspect]
     Indication: DEMENTIA ALZHEIMER'S TYPE
     Route: 048
     Dates: start: 20030601, end: 20030101
  3. NAMENDA [Suspect]
     Route: 048
     Dates: start: 20030101, end: 20030101
  4. NAMENDA [Suspect]
     Route: 048
     Dates: start: 20030101, end: 20030101
  5. NAMENDA [Suspect]
     Route: 048
     Dates: start: 20030101, end: 20040107
  6. NAMENDA [Suspect]
     Route: 048
     Dates: start: 20040116
  7. K-DUR 10 [Concomitant]
     Route: 065
  8. ZOCOR [Suspect]
     Indication: HYPERLIPIDAEMIA
     Route: 048
     Dates: end: 20040101
  9. ZOCOR [Suspect]
     Route: 048
  10. VITAMIN E [Concomitant]
     Route: 065
  11. TYLENOL (CAPLET) [Concomitant]
     Route: 065
     Dates: start: 20040101, end: 20040107
  12. ASCORBIC ACID [Concomitant]
     Route: 065
  13. ASPIRIN [Concomitant]
     Route: 065
  14. ARICEPT [Concomitant]
     Route: 065
     Dates: start: 20010201, end: 20040107
  15. HYDRODIURIL [Concomitant]
     Route: 065
  16. ADVIL [Suspect]
     Indication: PAIN
     Route: 065
     Dates: start: 20040101, end: 20040107

REACTIONS (11)
  - ALANINE AMINOTRANSFERASE INCREASED [None]
  - ASPARTATE AMINOTRANSFERASE INCREASED [None]
  - ATRIAL FIBRILLATION [None]
  - BUNDLE BRANCH BLOCK LEFT [None]
  - CACHEXIA [None]
  - DUODENAL ULCER HAEMORRHAGE [None]
  - GASTRIC ULCER [None]
  - HALLUCINATION [None]
  - LIVER FUNCTION TEST ABNORMAL [None]
  - OESOPHAGEAL DISORDER [None]
  - PULMONARY EMBOLISM [None]
